FAERS Safety Report 6634380-3 (Version None)
Quarter: 2010Q1

REPORT INFORMATION
  Report Type: 
  Country: None (occurrence: None)
  Receive Date: 20100315
  Receipt Date: 20100227
  Transmission Date: 20100710
  Serious: Yes (Hospitalization)
  Sender: FDA-Public Use
  Company Number: US-AMGEN-KDC398300

PATIENT

DRUGS (5)
  1. NEULASTA [Suspect]
     Indication: DRUG USE FOR UNKNOWN INDICATION
     Route: 065
  2. BEVACIZUMAB [Suspect]
     Route: 065
     Dates: start: 20090813
  3. DOCETAXEL [Suspect]
     Route: 065
     Dates: start: 20090813
  4. CYCLOPHOSPHAMIDE [Suspect]
     Route: 065
     Dates: start: 20090813
  5. DEXTROPROPOXYPHENE [Concomitant]

REACTIONS (1)
  - PAIN [None]
